FAERS Safety Report 5840626-1 (Version None)
Quarter: 2008Q3

REPORT INFORMATION
  Report Type: 
  Country: None (occurrence: None)
  Receive Date: 20080811
  Receipt Date: 20080731
  Transmission Date: 20090109
  Serious: Yes (Other)
  Sender: FDA-Public Use
  Company Number: JP-GENENTECH-265953

PATIENT
  Sex: Female

DRUGS (1)
  1. HERCEPTIN [Suspect]
     Indication: BREAST CANCER METASTATIC
     Dosage: 2 MG/KG, 1/WEEK
     Route: 041

REACTIONS (3)
  - INJECTION SITE EXTRAVASATION [None]
  - SYSTEMIC LUPUS ERYTHEMATOSUS [None]
  - ULCER [None]
